FAERS Safety Report 5374070-0 (Version None)
Quarter: 2007Q2

REPORT INFORMATION
  Report Type: 
  Country: None (occurrence: None)
  Receive Date: 20070627
  Receipt Date: 20070615
  Transmission Date: 20071010
  Serious: Yes (Hospitalization)
  Sender: FDA-Public Use
  Company Number: 2007BI008708

PATIENT
  Age: 59 Year
  Sex: Female
  Weight: 90.7194 kg

DRUGS (6)
  1. AVONEX [Suspect]
     Indication: MULTIPLE SCLEROSIS
     Dosage: 30 UG; QW;IM
     Route: 030
     Dates: start: 20031201
  2. DETROL LA [Concomitant]
  3. CRANBERRY TABLETS [Concomitant]
  4. PROTONIX [Concomitant]
  5. CALCIUM CHLORIDE [Concomitant]
  6. ASCORBIC ACID [Concomitant]

REACTIONS (5)
  - FATIGUE [None]
  - HYPERTENSION [None]
  - MUSCULAR WEAKNESS [None]
  - MYALGIA [None]
  - NEPHROLITHIASIS [None]
